FAERS Safety Report 24138232 (Version 1)
Quarter: 2024Q3

REPORT INFORMATION
  Report Type: Spontaneous
  Country: US (occurrence: US)
  Receive Date: 20240725
  Receipt Date: 20240725
  Transmission Date: 20241017
  Serious: No
  Sender: MYLAN
  Company Number: US-MYLANLABS-2024M1052426

PATIENT
  Age: 82 Year
  Sex: Female
  Weight: 56.25 kg

DRUGS (1)
  1. BREYNA [Suspect]
     Active Substance: BUDESONIDE\FORMOTEROL FUMARATE
     Indication: Asthma
     Dosage: 160/ 4.5 MICROGRAM, BID (2 PUFFS, TWICE DAILY)
     Route: 055
     Dates: start: 20240515

REACTIONS (2)
  - Device delivery system issue [Unknown]
  - Asthma [Unknown]

NARRATIVE: CASE EVENT DATE: 20240516
